FAERS Safety Report 9235005 (Version 1)
Quarter: 2013Q2

REPORT INFORMATION
  Report Type: Spontaneous
  Country: BR (occurrence: BR)
  Receive Date: 20130416
  Receipt Date: 20130416
  Transmission Date: 20140414
  Serious: Yes (Other)
  Sender: FDA-Public Use
  Company Number: BR-PFIZER INC-2013114611

PATIENT
  Age: 93 Year
  Sex: Male
  Weight: 60 kg

DRUGS (2)
  1. XALATAN [Suspect]
     Indication: GLAUCOMA
     Dosage: 3 UG, 2X/DAY (TWO DROPS EACH EYE, TWICE A DAY)
     Route: 047
  2. OPTIVE [Concomitant]
     Dosage: UNK
     Dates: start: 20100409

REACTIONS (5)
  - Blindness [Unknown]
  - Off label use [Unknown]
  - Eye pruritus [Unknown]
  - Overdose [Unknown]
  - Intentional drug misuse [Unknown]
